FAERS Safety Report 7084024-4 (Version None)
Quarter: 2010Q4

REPORT INFORMATION
  Report Type: 
  Country: None (occurrence: None)
  Receive Date: 20101104
  Receipt Date: 20101026
  Transmission Date: 20110411
  Serious: Yes (Death, Hospitalization, Other)
  Sender: FDA-Public Use
  Company Number: PL-CEPHALON-2010005298

PATIENT
  Sex: Male
  Weight: 95 kg

DRUGS (8)
  1. FENTANYL CITRATE [Suspect]
     Indication: BREAKTHROUGH PAIN
     Route: 002
     Dates: start: 20091210, end: 20101021
  2. METOCLOPRAMIDE [Concomitant]
     Dates: start: 20090904
  3. XELODA [Concomitant]
     Dates: start: 20090504
  4. ZOFRAN [Concomitant]
  5. AMLODIPINE [Concomitant]
  6. PARACETAMOL [Concomitant]
  7. PRAMOLAN [Concomitant]
     Dates: start: 20090804
  8. DURAGESIC-100 [Concomitant]
     Dates: start: 20090217

REACTIONS (1)
  - ILEUS [None]
